FAERS Safety Report 6881532-3 (Version None)
Quarter: 2010Q3

REPORT INFORMATION
  Report Type: 
  Country: None (occurrence: None)
  Receive Date: 20100729
  Receipt Date: 20100721
  Transmission Date: 20110219
  Serious: Yes (Hospitalization, Disabling)
  Sender: FDA-Public Use
  Company Number: DE-BIOGENIDEC-2010BI024579

PATIENT
  Age: 41 Year
  Sex: Female
  Weight: 83 kg

DRUGS (1)
  1. AVONEX [Suspect]
     Indication: RELAPSING-REMITTING MULTIPLE SCLEROSIS
     Route: 030
     Dates: start: 20090429

REACTIONS (3)
  - ACNE [None]
  - GINGIVAL RECESSION [None]
  - WALKING DISABILITY [None]
